FAERS Safety Report 8549920-7 (Version None)
Quarter: 2012Q3

REPORT INFORMATION
  Report Type: 
  Country: None (occurrence: None)
  Receive Date: 20120730
  Receipt Date: 20120724
  Transmission Date: 20120928
  Serious: Yes (Hospitalization)
  Sender: FDA-Public Use
  Company Number: US-AMGEN-USASP2012046251

PATIENT
  Age: 60 Year
  Sex: Male

DRUGS (1)
  1. ENBREL [Suspect]
     Indication: RHEUMATOID ARTHRITIS
     Dosage: 50 MG, QWK
     Dates: start: 20110413

REACTIONS (7)
  - RESPIRATORY TRACT INFECTION [None]
  - PAIN [None]
  - MALAISE [None]
  - HEART RATE INCREASED [None]
  - PNEUMONIA [None]
  - PLEURAL EFFUSION [None]
  - DEHYDRATION [None]
